FAERS Safety Report 14634215 (Version 1)
Quarter: 2018Q1

REPORT INFORMATION
  Report Type: Spontaneous
  Country: US (occurrence: US)
  Receive Date: 20180314
  Receipt Date: 20180314
  Transmission Date: 20180509
  Serious: Yes (Death, Hospitalization, Other)
  Sender: FDA-Public Use
  Company Number: US-RECORDATI RARE DISEASES INC.-US-R13005-18-00068

PATIENT
  Age: 44 Year
  Sex: Female

DRUGS (1)
  1. METHAMPHETAMINE [Suspect]
     Active Substance: METHAMPHETAMINE
     Indication: PRODUCT USED FOR UNKNOWN INDICATION
     Route: 065

REACTIONS (13)
  - Stab wound [Unknown]
  - Colectomy total [Unknown]
  - Pneumothorax [Unknown]
  - Liver injury [Unknown]
  - Abdominal operation [Unknown]
  - Sepsis [Unknown]
  - Traumatic liver injury [Unknown]
  - Small intestinal resection [Unknown]
  - Condition aggravated [Unknown]
  - Intestinal ischaemia [Fatal]
  - Splenic injury [Unknown]
  - Gastrointestinal injury [Unknown]
  - Splenectomy [Unknown]
